FAERS Safety Report 16066387 (Version 1)
Quarter: 2019Q2

REPORT INFORMATION
  Report Type: Spontaneous
  Country: US (occurrence: US)
  Receive Date: 20190312
  Receipt Date: 20190312
  Transmission Date: 20190711
  Serious: Yes (Hospitalization)
  Sender: FDA-Public Use
  Company Number: None

PATIENT
  Age: 78 Year
  Sex: Female

DRUGS (7)
  1. XELJANZ XR [Suspect]
     Active Substance: TOFACITINIB CITRATE
     Indication: RHEUMATOID ARTHRITIS
     Route: 048
  2. OLM MED/HCTZ TAB 40-25MG [Concomitant]
     Dates: start: 20181113
  3. VALACYCLOVIR TAB 500MG [Concomitant]
     Dates: start: 20181112
  4. FUROSEMIDE TAB 40MG [Concomitant]
     Dates: start: 20190204
  5. POT CHLORIDE TAB 10MEQ [Concomitant]
     Dates: start: 20190204
  6. PENICILLIN VK TAB 500MG [Concomitant]
     Dates: start: 20190204
  7. PENICILLIN VK TAB 500MG [Concomitant]
     Dates: start: 20190115

REACTIONS (3)
  - Dyspnoea [None]
  - Loss of personal independence in daily activities [None]
  - Gait disturbance [None]

NARRATIVE: CASE EVENT DATE: 20190311
